FAERS Safety Report 10055474 (Version 1)
Quarter: 2014Q2

REPORT INFORMATION
  Report Type: Other
  Country: GB (occurrence: GB)
  Receive Date: 20140403
  Receipt Date: 20140403
  Transmission Date: 20141212
  Serious: Yes (Hospitalization)
  Sender: FDA-Public Use
  Company Number: GB-LUPIN PHARMACEUTICALS INC.-E2B_00001870

PATIENT
  Age: 39 Year
  Sex: Male

DRUGS (6)
  1. SIMVASTATIN [Suspect]
     Indication: HYPERCHOLESTEROLAEMIA
     Route: 048
  2. AMISULPRIDE [Suspect]
     Indication: SCHIZOPHRENIA
     Route: 048
  3. CLOZARIL [Suspect]
     Indication: SCHIZOPHRENIA
     Route: 048
     Dates: start: 20041129
  4. CLOZARIL [Suspect]
     Route: 048
  5. LAMOTRIGINE [Suspect]
     Indication: EPILEPSY
     Route: 048
  6. METFORMIN [Suspect]
     Indication: DIABETES MELLITUS
     Route: 048

REACTIONS (4)
  - Schizophrenia [Recovering/Resolving]
  - Aggression [Unknown]
  - Antipsychotic drug level decreased [Unknown]
  - Treatment noncompliance [Unknown]
